FAERS Safety Report 24057414 (Version 2)
Quarter: 2024Q3

REPORT INFORMATION
  Report Type: Spontaneous
  Country: IT (occurrence: IT)
  Receive Date: 20240706
  Receipt Date: 20240907
  Transmission Date: 20241016
  Serious: Yes (Hospitalization, Other)
  Sender: AUROBINDO
  Company Number: IT-MINISAL02-992757

PATIENT
  Age: 76 Year
  Sex: Female
  Weight: 71 kg

DRUGS (3)
  1. CARBOPLATIN [Suspect]
     Active Substance: CARBOPLATIN
     Indication: Breast cancer stage IV
     Dosage: 400 MILLIGRAM PER CUBIC METRE
     Route: 042
     Dates: start: 20231130, end: 20240223
  2. CARBOPLATIN [Suspect]
     Active Substance: CARBOPLATIN
     Dosage: UNK, 45 WEEK (CARBOPLATIN AUC 2 EVERY 14 DAYS; TREATMENT DISCONTINUED FOR DISEASE PROGRESSION)
     Route: 042
     Dates: start: 20231130, end: 20240223
  3. SACITUZUMAB GOVITECAN [Suspect]
     Active Substance: SACITUZUMAB GOVITECAN
     Indication: Breast cancer stage IV
     Dosage: 10 MILLIGRAM/KILOGRAM
     Route: 042
     Dates: start: 20240318, end: 20240422

REACTIONS (2)
  - Febrile neutropenia [Recovered/Resolved]
  - Diarrhoea [Recovered/Resolved]

NARRATIVE: CASE EVENT DATE: 20240427
